FAERS Safety Report 7068133-1 (Version None)
Quarter: 2010Q4

REPORT INFORMATION
  Report Type: 
  Country: None (occurrence: None)
  Receive Date: 20101028
  Receipt Date: 20101022
  Transmission Date: 20110411
  Serious: Yes (Death)
  Sender: FDA-Public Use
  Company Number: JP-ROCHE-636872

PATIENT
  Sex: Male
  Weight: 9 kg

DRUGS (17)
  1. ROCEPHIN [Suspect]
     Indication: MENINGITIS BACTERIAL
     Route: 041
     Dates: start: 20081201, end: 20081208
  2. CLAFORAN [Suspect]
     Indication: MENINGITIS BACTERIAL
     Dosage: ROUTE: INJECTABLE (NOT OTHERWISE SPECIFIED)
     Route: 050
     Dates: start: 20081208, end: 20081220
  3. MEROPEN [Concomitant]
     Route: 041
     Dates: start: 20081201, end: 20081205
  4. MIRACLID [Concomitant]
     Route: 041
     Dates: start: 20081201, end: 20081204
  5. FAMOTIDINE [Concomitant]
     Dosage: DRUG: FAMOSTAGINE
     Dates: start: 20081201, end: 20081205
  6. THIOPENTAL SODIUM [Concomitant]
     Dosage: ROUTE: IV (NOS)
     Route: 042
     Dates: start: 20081201, end: 20081201
  7. DECADRON [Concomitant]
     Route: 048
     Dates: start: 20081201, end: 20081204
  8. HORIZON [Concomitant]
     Dosage: ROUTE: IV (NOS)
     Route: 042
     Dates: start: 20081201, end: 20081201
  9. MUCODYNE [Concomitant]
     Dosage: DIVIDED INTO 3 DOSES
     Route: 048
     Dates: start: 20081202, end: 20081221
  10. MUCOSOLVAN [Concomitant]
     Dosage: MUCOSOLVAN: SYRUP
     Route: 048
     Dates: start: 20081202, end: 20081221
  11. MEDICON [Concomitant]
     Dosage: DIVIDED INTO 3 DOSES
     Route: 048
     Dates: start: 20081202, end: 20081221
  12. TRICLORYL [Concomitant]
     Route: 048
     Dates: start: 20081204, end: 20081204
  13. TRICLORYL [Concomitant]
     Route: 048
     Dates: start: 20081206, end: 20081206
  14. ANHIBA [Concomitant]
     Route: 054
     Dates: start: 20081208, end: 20081208
  15. ANHIBA [Concomitant]
     Route: 054
     Dates: start: 20081211, end: 20081211
  16. ESCRE [Concomitant]
     Route: 054
     Dates: start: 20081211, end: 20081211
  17. ESCRE [Concomitant]
     Route: 054
     Dates: start: 20081216, end: 20081216

REACTIONS (6)
  - ACUTE RESPIRATORY DISTRESS SYNDROME [None]
  - DRUG RASH WITH EOSINOPHILIA AND SYSTEMIC SYMPTOMS [None]
  - HEPATITIS FULMINANT [None]
  - INFECTION [None]
  - MULTI-ORGAN FAILURE [None]
  - SEPSIS [None]
